FAERS Safety Report 8617535-8 (Version None)
Quarter: 2012Q3

REPORT INFORMATION
  Report Type: 
  Country: None (occurrence: None)
  Receive Date: 20120824
  Receipt Date: 20120203
  Transmission Date: 20120928
  Serious: No
  Sender: FDA-Public Use
  Company Number: US-ASTRAZENECA-2011SE68195

PATIENT
  Age: 58 Year
  Sex: Male

DRUGS (3)
  1. SEROQUEL [Suspect]
     Route: 048
  2. SYMBICORT [Suspect]
     Dosage: 160/4.5 MCG, UNKNOWN
     Route: 055
  3. SYMBICORT [Suspect]
     Dosage: 80/4.5 MCG, UNKNOWN
     Route: 055

REACTIONS (2)
  - DRUG DISPENSING ERROR [None]
  - MEMORY IMPAIRMENT [None]
